FAERS Safety Report 7753572-3 (Version None)
Quarter: 2011Q3

REPORT INFORMATION
  Report Type: 
  Country: None (occurrence: None)
  Receive Date: 20110915
  Receipt Date: 20110913
  Transmission Date: 20111222
  Serious: Yes (Hospitalization)
  Sender: FDA-Public Use
  Company Number: US-GLAXOSMITHKLINE-A0839516A

PATIENT
  Age: 61 Year
  Sex: Male

DRUGS (1)
  1. AVANDIA [Suspect]
     Indication: TYPE 2 DIABETES MELLITUS
     Dosage: 4MG VARIABLE DOSE
     Route: 065
     Dates: start: 20040801, end: 20070601

REACTIONS (6)
  - ANGINA UNSTABLE [None]
  - ACUTE CORONARY SYNDROME [None]
  - CARDIAC FAILURE [None]
  - BRADYCARDIA [None]
  - MYOCARDIAL INFARCTION [None]
  - MUSCULOSKELETAL CHEST PAIN [None]
